FAERS Safety Report 13590863 (Version 1)
Quarter: 2017Q2

REPORT INFORMATION
  Report Type: Spontaneous
  Country: IT (occurrence: IT)
  Receive Date: 20170530
  Receipt Date: 20170530
  Transmission Date: 20170830
  Serious: Yes (Other)
  Sender: FDA-Public Use
  Company Number: IT-SUN PHARMACEUTICAL INDUSTRIES LTD-2017R1-141798

PATIENT
  Age: 38 Year
  Sex: Male

DRUGS (2)
  1. TOPIRAMATE. [Suspect]
     Active Substance: TOPIRAMATE
     Indication: MIGRAINE
     Dosage: 50 MG, BID
     Route: 065
  2. TOPIRAMATE. [Suspect]
     Active Substance: TOPIRAMATE
     Indication: MIGRAINE
     Dosage: 12.5 MG, DAILY GRADUAL INCREMENTS
     Route: 065

REACTIONS (3)
  - Disease recurrence [Unknown]
  - Migraine [Unknown]
  - Depressive symptom [Recovered/Resolved]
